FAERS Safety Report 4567820-4 (Version None)
Quarter: 2005Q1

REPORT INFORMATION
  Report Type: 
  Country: None (occurrence: None)
  Receive Date: 20050202
  Receipt Date: 20041013
  Transmission Date: 20050727
  Serious: No
  Sender: FDA-Public Use
  Company Number: US-GLAXOSMITHKLINE-A0529673A

PATIENT
  Sex: Female

DRUGS (2)
  1. AVANDAMET [Suspect]
     Dosage: 4MG TWICE PER DAY
     Route: 048
  2. GLUCOTROL [Concomitant]

REACTIONS (1)
  - BLOOD GLUCOSE DECREASED [None]
